FAERS Safety Report 8410947-7 (Version None)
Quarter: 2012Q2

REPORT INFORMATION
  Report Type: 
  Country: None (occurrence: None)
  Receive Date: 20120605
  Receipt Date: 20120604
  Transmission Date: 20120825
  Serious: No
  Sender: FDA-Public Use
  Company Number: US-PFIZER INC-2012096150

PATIENT
  Sex: Female
  Weight: 58.05 kg

DRUGS (6)
  1. XALKORI [Suspect]
     Dosage: UNK
  2. AMLODIPINE BESILATE [Concomitant]
     Indication: HYPERTENSION
     Dosage: 25 MG, DAILY
     Route: 048
  3. XALKORI [Suspect]
     Dosage: UNK
  4. XALKORI [Suspect]
     Indication: LUNG NEOPLASM MALIGNANT
     Dosage: 250 MG, 2X/DAY
     Route: 048
     Dates: start: 20120101
  5. XALKORI [Suspect]
     Dosage: UNK
  6. LOSARTAN [Concomitant]
     Indication: HYPERTENSION
     Dosage: 100 MG, DAILY
     Route: 048

REACTIONS (3)
  - OEDEMA PERIPHERAL [None]
  - CONSTIPATION [None]
  - HEADACHE [None]
